FAERS Safety Report 19602079 (Version 1)
Quarter: 2021Q3

REPORT INFORMATION
  Report Type: Spontaneous
  Country: FR (occurrence: FR)
  Receive Date: 20210723
  Receipt Date: 20210723
  Transmission Date: 20211014
  Serious: Yes (Hospitalization)
  Sender: FDA-Public Use
  Company Number: FR-RANBAXY-2008RR-12932

PATIENT
  Age: 33 Year
  Sex: Male

DRUGS (5)
  1. TRAMADOL. [Suspect]
     Active Substance: TRAMADOL
     Indication: PRODUCT USED FOR UNKNOWN INDICATION
     Dosage: 10 G, UNK
     Route: 065
  2. CLONAZEPAM. [Suspect]
     Active Substance: CLONAZEPAM
     Indication: INTENTIONAL OVERDOSE
     Dosage: 80 MG, UNK
     Route: 065
  3. TRAMADOL HYDROCHLORIDE TABLETS, USP 50 MG [Suspect]
     Active Substance: TRAMADOL HYDROCHLORIDE
     Indication: PRODUCT USED FOR UNKNOWN INDICATION
     Dosage: FREQUENCY TEXT: UP TO 10 G, ONCE
     Route: 048
  4. GABAPENTIN. [Suspect]
     Active Substance: GABAPENTIN
     Indication: INTENTIONAL OVERDOSE
     Dosage: 1 G, UNK
     Route: 065
  5. HYDROXYZINE [Suspect]
     Active Substance: HYDROXYZINE HYDROCHLORIDE
     Indication: INTENTIONAL OVERDOSE
     Dosage: 6 G, UNK
     Route: 065

REACTIONS (10)
  - Shock [Recovering/Resolving]
  - Cardiogenic shock [Unknown]
  - Cardiac arrest [Recovering/Resolving]
  - Seizure [Unknown]
  - Intentional overdose [Unknown]
  - Toxicity to various agents [Unknown]
  - Brain injury [Unknown]
  - Acute kidney injury [Unknown]
  - Ventricular tachycardia [Unknown]
  - Coma [Unknown]
